FAERS Safety Report 8112459 (Version 3)
Quarter: 2013Q4

REPORT INFORMATION
  Report Type: Spontaneous
  Country: US (occurrence: US)
  Receive Date: 20110830
  Receipt Date: 20131108
  Transmission Date: 20140711
  Serious: Yes (Hospitalization)
  Sender: FDA-Public Use
  Company Number: US-B.I. PHARMACEUTICALS,INC./RIDGEFIELD-2011-BP-20819BP

PATIENT
  Age: 64 Year
  Sex: Female
  Weight: 81.65 kg

DRUGS (15)
  1. PRADAXA [Suspect]
     Indication: ATRIAL FIBRILLATION
     Dosage: 300 MG
     Route: 048
     Dates: start: 20110225, end: 20110428
  2. PRADAXA [Suspect]
     Indication: ANTICOAGULANT THERAPY
  3. RHYTHMOL [Concomitant]
     Indication: ATRIAL FIBRILLATION
     Dosage: 325 MG
     Route: 048
     Dates: start: 2010
  4. LESCOL [Concomitant]
     Indication: BLOOD CHOLESTEROL INCREASED
     Dosage: 80 MG
     Route: 048
  5. AMLODIPINE [Concomitant]
     Indication: HYPERTENSION
     Dosage: 10 MG
     Route: 048
     Dates: start: 1993
  6. DIURETIC [Concomitant]
     Indication: HYPERTENSION
     Dosage: 25 MG
     Route: 048
  7. MULTIVITAMIN [Concomitant]
     Indication: SUPPLEMENTATION THERAPY
     Route: 048
  8. CALCIUM VITAMIN D [Concomitant]
     Indication: SUPPLEMENTATION THERAPY
     Route: 048
  9. ASPIRIN [Concomitant]
     Indication: ATRIAL FIBRILLATION
     Dosage: 81 MG
     Route: 048
     Dates: end: 20110428
  10. CANDESARTAN [Concomitant]
     Indication: HYPERTENSION
     Dosage: 32 MG
     Route: 048
  11. FISH OIL [Concomitant]
     Dosage: 1000 MG
     Route: 048
  12. TRICOR [Concomitant]
     Dosage: 140 MG
     Route: 048
  13. ASCORBIC ACID [Concomitant]
     Dosage: 500 MG
     Route: 048
  14. VITAMIN D [Concomitant]
     Dosage: 1000 U
     Route: 048
  15. POTASSIUM CHLORIDE [Concomitant]
     Dosage: 40 MEQ
     Route: 048

REACTIONS (3)
  - Gastrointestinal haemorrhage [Unknown]
  - Local swelling [Recovered/Resolved]
  - Contusion [Recovered/Resolved]
